FAERS Safety Report 10351033 (Version 4)
Quarter: 2014Q4

REPORT INFORMATION
  Report Type: Spontaneous
  Country: US (occurrence: US)
  Receive Date: 20140730
  Receipt Date: 20141112
  Transmission Date: 20150528
  Serious: Yes (Other)
  Sender: FDA-Public Use
  Company Number: US-PFIZER INC-2014211286

PATIENT
  Age: 53 Year
  Sex: Male

DRUGS (3)
  1. REVATIO [Suspect]
     Active Substance: SILDENAFIL CITRATE
     Indication: VASODILATATION
     Dosage: 20 MG, 3X/DAY (MORNING, NOON AND NIGHT)
  2. REVATIO [Suspect]
     Active Substance: SILDENAFIL CITRATE
     Dosage: UNK
  3. LETAIRIS [Concomitant]
     Active Substance: AMBRISENTAN
     Indication: VASODILATATION
     Dosage: UNK

REACTIONS (1)
  - Dyspnoea [Recovering/Resolving]
